FAERS Safety Report 6719357-1 (Version None)
Quarter: 2010Q2

REPORT INFORMATION
  Report Type: 
  Country: None (occurrence: None)
  Receive Date: 20100511
  Receipt Date: 20100430
  Transmission Date: 20101027
  Serious: Yes (Other)
  Sender: FDA-Public Use
  Company Number: BE-JNJFOC-20100501119

PATIENT
  Age: 55 Year
  Sex: Female

DRUGS (13)
  1. REMICADE [Suspect]
     Indication: ANKYLOSING SPONDYLITIS
     Route: 042
  2. SALAZOPYRIN [Concomitant]
  3. CELEBREX [Concomitant]
  4. INDOCIN [Concomitant]
  5. CONTRAMAL [Concomitant]
  6. CARBONATE CALCIUM [Concomitant]
  7. SEROXAT [Concomitant]
  8. EXELON [Concomitant]
  9. ZANIDIP [Concomitant]
     Dosage: 1/2 DOSE A DAY
  10. D CURE [Concomitant]
     Dosage: 1 AMP A WEEK
  11. ESTROGEL [Concomitant]
  12. UTROGESTAN [Concomitant]
  13. MYOLASTAN [Concomitant]

REACTIONS (4)
  - CRYOGLOBULINAEMIA [None]
  - IMMUNE SYSTEM DISORDER [None]
  - NEOPLASM [None]
  - SCLERODERMA [None]
